FAERS Safety Report 8076974-7 (Version None)
Quarter: 2012Q1

REPORT INFORMATION
  Report Type: 
  Country: None (occurrence: None)
  Receive Date: 20120127
  Receipt Date: 20120109
  Transmission Date: 20120608
  Serious: Yes (Other)
  Sender: FDA-Public Use
  Company Number: US-GLAXOSMITHKLINE-A0961016A

PATIENT
  Age: 50 Year
  Sex: Male
  Weight: 86.4 kg

DRUGS (1)
  1. LAMICTAL [Suspect]
     Indication: AFFECTIVE DISORDER
     Dosage: 100MG UNKNOWN
     Route: 065

REACTIONS (3)
  - CELLULITIS [None]
  - PENILE SWELLING [None]
  - GENITAL LESION [None]
